FAERS Safety Report 7284095-6 (Version None)
Quarter: 2011Q1

REPORT INFORMATION
  Report Type: 
  Country: None (occurrence: None)
  Receive Date: 20110209
  Receipt Date: 20100309
  Transmission Date: 20110831
  Serious: Yes (Other)
  Sender: FDA-Public Use
  Company Number: US-PFIZER INC-2010033782

PATIENT
  Age: 45 Year
  Sex: Male

DRUGS (1)
  1. GEODON [Suspect]
     Dosage: 20 MG, SINGLE
     Route: 030
     Dates: start: 20100309, end: 20100309

REACTIONS (2)
  - WRONG TECHNIQUE IN DRUG USAGE PROCESS [None]
  - SOMNOLENCE [None]
